FAERS Safety Report 9742730 (Version 1)
Quarter: 2013Q4

REPORT INFORMATION
  Report Type: Spontaneous
  Country: US (occurrence: US)
  Receive Date: 20131210
  Receipt Date: 20131210
  Transmission Date: 20140711
  Serious: Yes (Hospitalization)
  Sender: FDA-Public Use
  Company Number: US-GILEAD-2009-0025852

PATIENT
  Sex: Male
  Weight: 64.86 kg

DRUGS (6)
  1. LETAIRIS [Suspect]
     Indication: PULMONARY ARTERIAL HYPERTENSION
     Route: 048
     Dates: start: 20070908
  2. METOLAZONE [Concomitant]
  3. REVATIO [Concomitant]
  4. LASIX [Concomitant]
  5. KLOR-CON [Concomitant]
  6. ASPIRIN [Concomitant]

REACTIONS (2)
  - Dyspnoea [Unknown]
  - Fluid retention [Unknown]
